FAERS Safety Report 18022565 (Version 1)
Quarter: 2020Q3

REPORT INFORMATION
  Report Type: Spontaneous
  Country: US (occurrence: US)
  Receive Date: 20200715
  Receipt Date: 20200715
  Transmission Date: 20201103
  Serious: Yes (Hospitalization, Other)
  Sender: FDA-Public Use
  Company Number: US-CPL-001842

PATIENT
  Age: 79 Year
  Sex: Male

DRUGS (1)
  1. HYDRALAZINE/HYDRALAZINE HYDROCHLORIDE [Suspect]
     Active Substance: HYDRALAZINE HYDROCHLORIDE
     Indication: ESSENTIAL HYPERTENSION
     Dates: start: 2016, end: 201611

REACTIONS (1)
  - Lupus nephritis [Recovered/Resolved]

NARRATIVE: CASE EVENT DATE: 2016
